FAERS Safety Report 9380513 (Version 22)
Quarter: 2015Q4

REPORT INFORMATION
  Report Type: Report from Study
  Country: US (occurrence: US)
  Receive Date: 20130702
  Receipt Date: 20151201
  Transmission Date: 20160305
  Serious: Yes (Hospitalization, Other)
  Sender: FDA-Public Use
  Company Number: US-ACTELION-A-US2013-81864

PATIENT
  Age: 38 Year
  Sex: Male

DRUGS (8)
  1. COUMADIN [Concomitant]
     Active Substance: WARFARIN SODIUM
  2. VELETRI [Suspect]
     Active Substance: EPOPROSTENOL
     Indication: PULMONARY HYPERTENSION
     Dosage: 57 NG/KG, PER MIN
     Route: 042
     Dates: start: 20111221
  3. FUROSEMIDE. [Concomitant]
     Active Substance: FUROSEMIDE
  4. VELETRI [Suspect]
     Active Substance: EPOPROSTENOL
     Dosage: 56 NG/KG, PER MIN
     Route: 042
     Dates: start: 20111221
  5. HEPARIN [Concomitant]
     Active Substance: HEPARIN SODIUM
  6. NAFCILLIN [Suspect]
     Active Substance: NAFCILLIN\NAFCILLIN SODIUM
     Indication: STAPHYLOCOCCAL INFECTION
     Route: 048
  7. VELETRI [Suspect]
     Active Substance: EPOPROSTENOL
     Dosage: 59 NG/KG, PER MIN
     Route: 042
     Dates: start: 20120103
  8. POTASSIUM [Concomitant]
     Active Substance: POTASSIUM

REACTIONS (25)
  - Device related infection [Unknown]
  - Product quality issue [Unknown]
  - Product deposit [Unknown]
  - Rib fracture [Unknown]
  - Pneumothorax [Unknown]
  - Device related sepsis [Unknown]
  - Nausea [Unknown]
  - Device occlusion [Unknown]
  - Medical device change [Unknown]
  - Fall [Unknown]
  - Oedema peripheral [Unknown]
  - Catheter site haemorrhage [Unknown]
  - Abdominal pain [Unknown]
  - Fluid overload [Unknown]
  - Dyspnoea [Unknown]
  - Thrombosis in device [Unknown]
  - Acute kidney injury [Recovered/Resolved]
  - Drug dose omission [Unknown]
  - Staphylococcus test positive [Unknown]
  - Blood culture positive [Unknown]
  - Catheter site discharge [Unknown]
  - Pyrexia [Unknown]
  - Blood pressure decreased [Unknown]
  - Vomiting [Unknown]
  - Device alarm issue [Unknown]

NARRATIVE: CASE EVENT DATE: 20130622
